FAERS Safety Report 5012127-4 (Version None)
Quarter: 2006Q2

REPORT INFORMATION
  Report Type: 
  Country: None (occurrence: None)
  Receive Date: 20060524
  Receipt Date: 20060511
  Transmission Date: 20061013
  Serious: Yes (Death)
  Sender: FDA-Public Use
  Company Number: ES-2006-011378

PATIENT
  Age: 44 Year
  Sex: Male
  Weight: 74 kg

DRUGS (1)
  1. QUADRAMET [Suspect]
     Dosage: INTRAVENOUS
     Route: 042
     Dates: start: 20060207, end: 20060207

REACTIONS (1)
  - THROMBOCYTOPENIA [None]
